FAERS Safety Report 12308852 (Version 2)
Quarter: 2016Q2

REPORT INFORMATION
  Report Type: Spontaneous
  Country: US (occurrence: US)
  Receive Date: 20160427
  Receipt Date: 20160513
  Transmission Date: 20160815
  Serious: No
  Sender: FDA-Public Use
  Company Number: US-GLENMARK PHARMACEUTICALS INC, USA.-2015GMK020684

PATIENT
  Age: 77 Year
  Sex: Male

DRUGS (14)
  1. CALCIPOTRIENE. [Suspect]
     Active Substance: CALCIPOTRIENE
     Indication: KAPOSI^S SARCOMA
     Dosage: UNK, DAILY APPLICATION
     Route: 065
  2. LISINOPRIL. [Concomitant]
     Active Substance: LISINOPRIL
     Indication: PRODUCT USED FOR UNKNOWN INDICATION
     Dosage: UNK
     Route: 065
  3. METOPROLOL. [Concomitant]
     Active Substance: METOPROLOL
     Indication: PRODUCT USED FOR UNKNOWN INDICATION
     Dosage: UNK
     Route: 065
  4. TRAVOPROST [Concomitant]
     Active Substance: TRAVOPROST
     Indication: PRODUCT USED FOR UNKNOWN INDICATION
     Dosage: UNK
     Route: 065
  5. POTASSIUM CITRATE. [Concomitant]
     Active Substance: POTASSIUM CITRATE
     Indication: PRODUCT USED FOR UNKNOWN INDICATION
     Dosage: UNK
     Route: 065
  6. TRIAMCINOLONE [Concomitant]
     Active Substance: TRIAMCINOLONE
     Indication: KAPOSI^S SARCOMA
     Dosage: UNK, DAILY APPLICATION
     Route: 065
  7. IMIQUIMOD. [Suspect]
     Active Substance: IMIQUIMOD
     Indication: KAPOSI^S SARCOMA
     Dosage: UNK, DAILY APPLICATION
     Route: 065
  8. METRONIDAZOLE. [Concomitant]
     Active Substance: METRONIDAZOLE
     Indication: PRODUCT USED FOR UNKNOWN INDICATION
     Dosage: UNK
     Route: 065
  9. CLOPIDOGREL [Concomitant]
     Active Substance: CLOPIDOGREL BISULFATE
     Indication: PRODUCT USED FOR UNKNOWN INDICATION
     Dosage: UNK
     Route: 065
  10. VINBLASTINE [Concomitant]
     Active Substance: VINBLASTINE
     Indication: KAPOSI^S SARCOMA
     Dosage: UNK
     Route: 026
  11. ASPIRIN. [Concomitant]
     Active Substance: ASPIRIN
     Indication: PRODUCT USED FOR UNKNOWN INDICATION
     Dosage: UNK
     Route: 065
  12. SIMVASTATIN. [Concomitant]
     Active Substance: SIMVASTATIN
     Indication: PRODUCT USED FOR UNKNOWN INDICATION
     Dosage: UNK
     Route: 065
  13. TRETINOIN. [Concomitant]
     Active Substance: TRETINOIN
     Indication: KAPOSI^S SARCOMA
     Dosage: UNK, DAILY APPLICATION
     Route: 065
  14. STEROID ANTIBACTERIALS [Concomitant]
     Active Substance: UNSPECIFIED INGREDIENT
     Indication: PSORIASIS
     Dosage: UNK
     Route: 061

REACTIONS (1)
  - Off label use [Unknown]
